FAERS Safety Report 7833143-0 (Version None)
Quarter: 2011Q4

REPORT INFORMATION
  Report Type: 
  Country: None (occurrence: None)
  Receive Date: 20111024
  Receipt Date: 20111011
  Transmission Date: 20120403
  Serious: Yes (Other)
  Sender: FDA-Public Use
  Company Number: US-JNJFOC-20111007918

PATIENT
  Age: 15 Year
  Sex: Female
  Weight: 63.5 kg

DRUGS (1)
  1. LISTERINE TOTAL CARE PLUS WHITENING MOUTHWASH [Suspect]
     Indication: DENTAL CARE
     Dosage: 2 TEASPOONS ONE TIME
     Route: 048

REACTIONS (4)
  - OEDEMA MOUTH [None]
  - THERMAL BURN [None]
  - SWELLING FACE [None]
  - PAIN [None]
